FAERS Safety Report 5440703-3 (Version None)
Quarter: 2007Q3

REPORT INFORMATION
  Report Type: 
  Country: None (occurrence: None)
  Receive Date: 20070731
  Receipt Date: 20070419
  Transmission Date: 20080115
  Serious: No
  Sender: FDA-Public Use
  Company Number: US200705001268

PATIENT
  Age: 65 Year
  Sex: Male

DRUGS (12)
  1. BYETTA [Suspect]
     Indication: TYPE 2 DIABETES MELLITUS
     Dosage: 5 UG, 2/D, SUBCUTANEOUS; 10 UG, 2/D, SUBCUTANEOUS
     Route: 058
     Dates: start: 20050101, end: 20050101
  2. BYETTA [Suspect]
     Indication: TYPE 2 DIABETES MELLITUS
     Dosage: 5 UG, 2/D, SUBCUTANEOUS; 10 UG, 2/D, SUBCUTANEOUS
     Route: 058
     Dates: start: 20050101
  3. EXENATIDE 5MCG PEN, DISPOSABLE DEVICE (EXENATIDE PEN (5MCG)) PEN,DISPO [Concomitant]
  4. EXENAATIDE 10MCG PEN, DISPOSABLE DEVICE (EXENATIDE PEN (10MCG)) PEN, D [Concomitant]
  5. METFORMIN HCL [Concomitant]
  6. FLIMEPIRIDE (GLIMEPIRIDE) [Concomitant]
  7. AVAPRO [Concomitant]
  8. SYNTHROID [Concomitant]
  9. CHLORPROPAMIDE [Concomitant]
  10. LOTREL [Concomitant]
  11. FUROSEMIDE [Concomitant]
  12. TOPROL-XL [Concomitant]

REACTIONS (8)
  - AMNESIA [None]
  - ANOREXIA [None]
  - ANXIETY [None]
  - DIZZINESS [None]
  - LAZINESS [None]
  - MUSCULOSKELETAL DISCOMFORT [None]
  - PHOTOPSIA [None]
  - POOR QUALITY SLEEP [None]
